FAERS Safety Report 9839422 (Version 1)
Quarter: 2014Q1

REPORT INFORMATION
  Report Type: Spontaneous
  Country: IN (occurrence: IN)
  Receive Date: 20140123
  Receipt Date: 20140123
  Transmission Date: 20141002
  Serious: Yes (Other)
  Sender: FDA-Public Use
  Company Number: IN-SUN PHARMACEUTICAL INDUSTRIES LTD-2014SUN00051

PATIENT
  Age: 25 Year
  Sex: Female

DRUGS (4)
  1. SERTRALINE HCL TABS 50MG [Suspect]
     Indication: DEPRESSION
     Dosage: 50 MG, OD
     Route: 048
  2. SERTRALINE HCL TABS 50MG [Interacting]
     Dosage: 100 MG, OD
     Route: 048
  3. DOTHIEPIN [Interacting]
     Indication: DEPRESSION
     Dosage: 75 MG, OD
  4. PANTOPRAZOLE [Concomitant]
     Indication: ABDOMINAL PAIN UPPER
     Dosage: 40 MG, UNK
     Route: 048

REACTIONS (5)
  - Drug interaction [Recovered/Resolved]
  - Bradykinesia [Recovering/Resolving]
  - Salivary hypersecretion [Recovering/Resolving]
  - Tremor [Recovering/Resolving]
  - Hypomania [Recovered/Resolved]
